FAERS Safety Report 7946264-9 (Version None)
Quarter: 2011Q4

REPORT INFORMATION
  Report Type: 
  Country: None (occurrence: None)
  Receive Date: 20111129
  Receipt Date: 20111121
  Transmission Date: 20120403
  Serious: Yes (Other)
  Sender: FDA-Public Use
  Company Number: GB-ROCHE-799999

PATIENT
  Age: 27 Year
  Sex: Male

DRUGS (1)
  1. ACTEMRA [Suspect]
     Indication: RHEUMATOID ARTHRITIS
     Dosage: REPORTED AS BEING TREATED FOR 10 DAYS
     Route: 065

REACTIONS (1)
  - PANCREATITIS ACUTE [None]
